FAERS Safety Report 10679150 (Version 1)
Quarter: 2014Q4

REPORT INFORMATION
  Report Type: Spontaneous
  Country: RU (occurrence: RU)
  Receive Date: 20141229
  Receipt Date: 20141229
  Transmission Date: 20150529
  Serious: Yes (Other)
  Sender: FDA-Public Use
  Company Number: RU-ASTRAZENECA-2014SE98767

PATIENT
  Age: 65 Year
  Sex: Male

DRUGS (3)
  1. CORAXAN [Concomitant]
     Route: 048
  2. BETALOC ZOK [Suspect]
     Active Substance: METOPROLOL SUCCINATE
     Dosage: 50-100MG FOR 1 MONTH
     Route: 048
     Dates: start: 201411
  3. VERAPAMIL [Concomitant]
     Active Substance: VERAPAMIL HYDROCHLORIDE
     Route: 048

REACTIONS (4)
  - Respiratory failure [Unknown]
  - Bronchospasm [Unknown]
  - Cough [Unknown]
  - Dyspnoea [Unknown]
